FAERS Safety Report 9919326 (Version 2)
Quarter: 2014Q2

REPORT INFORMATION
  Report Type: Report from Study
  Country: US (occurrence: US)
  Receive Date: 20140224
  Receipt Date: 20140417
  Transmission Date: 20141212
  Serious: Yes (Other)
  Sender: FDA-Public Use
  Company Number: US-PURDUE-USA-2014-0111370

PATIENT
  Age: 47 Year
  Sex: Male

DRUGS (2)
  1. BTDS PATCH [Suspect]
     Indication: NEUROPATHY PERIPHERAL
     Dosage: 20 MCG/HR, WEEKLY
     Route: 062
     Dates: start: 20140131
  2. BTDS PATCH [Suspect]
     Indication: PAIN
     Dosage: 10 MCG/HR, WEEKLY
     Route: 062
     Dates: start: 20140122, end: 20140131

REACTIONS (8)
  - Thermal burn [Unknown]
  - Sensory loss [Unknown]
  - Drug withdrawal syndrome [Recovered/Resolved]
  - Hyperhidrosis [Recovered/Resolved]
  - Nausea [Recovered/Resolved]
  - Product adhesion issue [Unknown]
  - Product physical issue [Unknown]
  - Drug effect decreased [Unknown]
